FAERS Safety Report 18850463 (Version 1)
Quarter: 2021Q1

REPORT INFORMATION
  Report Type: Spontaneous
  Country: BE (occurrence: BE)
  Receive Date: 20210205
  Receipt Date: 20210205
  Transmission Date: 20210420
  Serious: Yes (Other)
  Sender: FDA-Public Use
  Company Number: BE-009507513-2102BEL000061

PATIENT
  Age: 28 Year
  Sex: Female
  Weight: 60 kg

DRUGS (1)
  1. IMPLANON NXT [Suspect]
     Active Substance: ETONOGESTREL
     Indication: CONTRACEPTION
     Dosage: IMPLANT PLACED IN THE RIGHT ARM ON 06?JUL?2020
     Route: 059
     Dates: start: 20200706, end: 20201201

REACTIONS (1)
  - Pregnancy with implant contraceptive [Unknown]
